FAERS Safety Report 7949558-6 (Version None)
Quarter: 2011Q4

REPORT INFORMATION
  Report Type: 
  Country: None (occurrence: None)
  Receive Date: 20111130
  Receipt Date: 20111123
  Transmission Date: 20120403
  Serious: Yes (Other)
  Sender: FDA-Public Use
  Company Number: GR-UCBSA-046439

PATIENT
  Sex: Female
  Weight: 70 kg

DRUGS (2)
  1. PREDNISOLONE [Concomitant]
     Route: 048
  2. CIMZIA [Suspect]
     Indication: RHEUMATOID ARTHRITIS
     Route: 058
     Dates: start: 20110725

REACTIONS (2)
  - FACE OEDEMA [None]
  - FATIGUE [None]
